FAERS Safety Report 7007918-4 (Version None)
Quarter: 2010Q3

REPORT INFORMATION
  Report Type: 
  Country: None (occurrence: None)
  Receive Date: 20100920
  Receipt Date: 20100909
  Transmission Date: 20110219
  Serious: Yes (Death, Life-Threatening)
  Sender: FDA-Public Use
  Company Number: LTI2010A00203

PATIENT
  Age: 76 Year
  Sex: Female

DRUGS (8)
  1. ACTOPLUS MET [Suspect]
     Indication: TYPE 2 DIABETES MELLITUS
     Dosage: ORAL
     Route: 048
     Dates: end: 20090909
  2. PERINDOPRIL ERBUMINE [Suspect]
     Dosage: ORAL
     Route: 048
     Dates: end: 20090909
  3. PREVISCAN (FLUINDIONE) [Suspect]
     Dosage: ORAL
     Route: 048
     Dates: end: 20090909
  4. CRESTOR [Suspect]
     Dosage: ORAL
     Route: 048
     Dates: end: 20090909
  5. BISOPROLOL FUMARATE [Suspect]
     Dosage: ORAL
     Route: 048
     Dates: end: 20090909
  6. ALLOPURINOL [Suspect]
     Dosage: ORAL
     Route: 048
     Dates: end: 20090909
  7. LASIX [Suspect]
     Dosage: ORAL
     Route: 048
     Dates: end: 20090909
  8. NITROGLYCERIN [Suspect]
     Dosage: TRANSDERMAL
     Route: 062
     Dates: end: 20090909

REACTIONS (15)
  - ABDOMINAL PAIN [None]
  - ASTHENIA [None]
  - DIARRHOEA [None]
  - DISORIENTATION [None]
  - ELECTROLYTE IMBALANCE [None]
  - HAEMODIALYSIS [None]
  - HAEMODYNAMIC INSTABILITY [None]
  - HYPERKALAEMIA [None]
  - HYPERTHERMIA [None]
  - HYPOTENSION [None]
  - LACTIC ACIDOSIS [None]
  - PALLOR [None]
  - RENAL FAILURE ACUTE [None]
  - SEPTIC SHOCK [None]
  - SYNCOPE [None]
